FAERS Safety Report 24915600 (Version 1)
Quarter: 2025Q1

REPORT INFORMATION
  Report Type: Spontaneous
  Country: SE (occurrence: SE)
  Receive Date: 20250203
  Receipt Date: 20250203
  Transmission Date: 20250408
  Serious: Yes (Other)
  Sender: IPCA
  Company Number: SE-IPCA LABORATORIES LIMITED-IPC-2025-SE-000230

PATIENT

DRUGS (2)
  1. LAMOTRIGINE [Suspect]
     Active Substance: LAMOTRIGINE
     Indication: Product used for unknown indication
     Route: 064
  2. LAMOTRIGINE [Suspect]
     Active Substance: LAMOTRIGINE
     Route: 063

REACTIONS (4)
  - Asphyxia [Recovered/Resolved]
  - Feeling jittery [Recovered/Resolved]
  - Exposure via breast milk [Unknown]
  - Foetal exposure during pregnancy [Unknown]
